FAERS Safety Report 4342506-X (Version None)
Quarter: 2004Q2

REPORT INFORMATION
  Report Type: 
  Country: None (occurrence: None)
  Receive Date: 20040416
  Receipt Date: 20040405
  Transmission Date: 20050107
  Serious: Yes (Life-Threatening)
  Sender: FDA-Public Use
  Company Number: 2004022559

PATIENT
  Age: 22 Month
  Sex: Female

DRUGS (2)
  1. ATARAX [Suspect]
     Indication: AGITATION
     Dosage: ORAL
     Route: 048
     Dates: start: 20030101, end: 20040301
  2. ATARAX [Suspect]
     Indication: INSOMNIA
     Dosage: ORAL
     Route: 048
     Dates: start: 20030101, end: 20040301

REACTIONS (2)
  - ANGIONEUROTIC OEDEMA [None]
  - LARYNGITIS VIRAL [None]
